FAERS Safety Report 4542266-3 (Version None)
Quarter: 2004Q4

REPORT INFORMATION
  Report Type: 
  Country: None (occurrence: None)
  Receive Date: 20041227
  Receipt Date: 20041215
  Transmission Date: 20050328
  Serious: Yes (Other)
  Sender: FDA-Public Use
  Company Number: 2004106950

PATIENT
  Age: 59 Year
  Sex: Female
  Weight: 76.2043 kg

DRUGS (11)
  1. ZOLOFT [Suspect]
     Indication: DEPRESSION
     Dosage: 100 MG (50 MG, 2 IN 1 D), ORAL
     Route: 048
  2. LIPITOR [Suspect]
     Indication: BLOOD CHOLESTEROL INCREASED
     Dosage: 20 MG, (20 MG, 1 IN 1 D), ORAL
     Route: 048
     Dates: start: 20040101
  3. QUINAPRIL HCL [Concomitant]
  4. AMLODIPINE BESYLATE [Concomitant]
  5. CELECOXIB            (CELECOXIB) [Concomitant]
  6. METOPROLOL TARTRATE [Concomitant]
  7. ANAGRELIDE HYDROCHLORIDE (ANAGRELIDE HYDROCHLORIDE) [Concomitant]
  8. ESOMEPRAZOLE (ESOMEPRAZOLE) [Concomitant]
  9. CARISOPRODOL [Concomitant]
  10. DIAZEPAM [Concomitant]
  11. VICODIN [Concomitant]

REACTIONS (14)
  - ARTERIAL DISORDER [None]
  - BLOOD CHOLESTEROL INCREASED [None]
  - CONDITION AGGRAVATED [None]
  - DEATH OF RELATIVE [None]
  - DEPRESSION [None]
  - HYPOAESTHESIA [None]
  - HYPOAESTHESIA ORAL [None]
  - MYOCARDIAL INFARCTION [None]
  - NERVOUS SYSTEM DISORDER [None]
  - PAIN [None]
  - PAIN IN EXTREMITY [None]
  - PHARMACEUTICAL PRODUCT COMPLAINT [None]
  - SLEEP DISORDER [None]
  - TRANSIENT ISCHAEMIC ATTACK [None]
